FAERS Safety Report 8598315-9 (Version None)
Quarter: 2012Q3

REPORT INFORMATION
  Report Type: 
  Country: None (occurrence: None)
  Receive Date: 20120806
  Receipt Date: 20120806
  Transmission Date: 20120928
  Serious: Yes (Life-Threatening, Other)
  Sender: FDA-Public Use
  Company Number: None

PATIENT
  Sex: Female
  Weight: 59.8748 kg

DRUGS (2)
  1. HCG 5000 [Suspect]
     Indication: WEIGHT CONTROL
     Dosage: INJECTIONS EVERY DAY, DAILY
     Dates: start: 20110330, end: 20110516
  2. HCG 5000 [Suspect]
     Indication: WEIGHT CONTROL
     Dosage: INJECTIONS EVERY DAY, DAILY
     Dates: start: 20101014, end: 20101201

REACTIONS (1)
  - BREAST CANCER STAGE II [None]
